FAERS Safety Report 20254024 (Version 5)
Quarter: 2022Q1

REPORT INFORMATION
  Report Type: Spontaneous
  Country: US (occurrence: US)
  Receive Date: 20211230
  Receipt Date: 20220329
  Transmission Date: 20220423
  Serious: No
  Sender: FDA-Public Use
  Company Number: US-JNJFOC-20211242412

PATIENT
  Age: 72 Year
  Sex: Male

DRUGS (3)
  1. ZYTIGA [Suspect]
     Active Substance: ABIRATERONE ACETATE
     Indication: Product used for unknown indication
     Dosage: 250MG TAB TAKE 4 TABLETS BY MOUTH ONCE DAILY AS DIRECTED.
     Route: 048
     Dates: start: 20211217
  2. ZYTIGA [Suspect]
     Active Substance: ABIRATERONE ACETATE
     Dosage: 250MG -TAKE 4 TABLETS BY MOUTH ONCE DAILY AS DIRECTED
     Route: 048
  3. PREDNISONE [Concomitant]
     Active Substance: PREDNISONE

REACTIONS (5)
  - Product use complaint [Unknown]
  - Dysphagia [Unknown]
  - Lactose intolerance [Unknown]
  - Constipation [Unknown]
  - Sciatica [Recovered/Resolved]

NARRATIVE: CASE EVENT DATE: 20211217
